FAERS Safety Report 14311310 (Version 1)
Quarter: 2017Q4

REPORT INFORMATION
  Report Type: Spontaneous
  Country: US (occurrence: US)
  Receive Date: 20171221
  Receipt Date: 20171221
  Transmission Date: 20180321
  Serious: No
  Sender: FDA-Public Use
  Company Number: US-TEVA-715855ACC

PATIENT
  Sex: Female
  Weight: 55 kg

DRUGS (2)
  1. DORZOLAMIDE HYDROCHLORIDE. [Suspect]
     Active Substance: DORZOLAMIDE HYDROCHLORIDE
     Dates: start: 200910, end: 20170109
  2. DORZOLAMIDE HYDROCHLORIDE. [Suspect]
     Active Substance: DORZOLAMIDE HYDROCHLORIDE
     Indication: GLAUCOMA
     Dosage: SOLUTION
     Dates: start: 2016

REACTIONS (11)
  - Lacrimation increased [Recovering/Resolving]
  - Eye pruritus [Recovering/Resolving]
  - Eye irritation [Recovered/Resolved]
  - Depressed mood [Recovering/Resolving]
  - Drug ineffective [Unknown]
  - Eyelid oedema [Recovering/Resolving]
  - Decreased appetite [Recovering/Resolving]
  - Ocular hyperaemia [Recovering/Resolving]
  - Feeling abnormal [Recovering/Resolving]
  - Visual impairment [Recovering/Resolving]
  - Fatigue [Recovering/Resolving]
